FAERS Safety Report 18891613 (Version 1)
Quarter: 2021Q1

REPORT INFORMATION
  Report Type: Spontaneous
  Country: FR (occurrence: FR)
  Receive Date: 20210215
  Receipt Date: 20210215
  Transmission Date: 20210420
  Serious: Yes (Death)
  Sender: FDA-Public Use
  Company Number: FR-ORION CORPORATION ORION PHARMA-21_00013097

PATIENT
  Age: 92 Year
  Sex: Male
  Weight: 61 kg

DRUGS (8)
  1. IMETH [Suspect]
     Active Substance: METHOTREXATE SODIUM
     Dosage: STRENGTH: 2.5 MG, NOT ADMINISTERED
     Route: 048
  2. FUROSEMIDE. [Concomitant]
     Active Substance: FUROSEMIDE
     Route: 048
  3. BISOPROLOL (HEMIFUMARATE) [Concomitant]
     Route: 048
  4. SOLUPRED [Concomitant]
     Dosage: STRENGTH: 5 MG
     Route: 048
  5. ACIDE FOLIQUE [Concomitant]
     Active Substance: FOLIC ACID
     Route: 048
  6. ELIQUIS [Concomitant]
     Active Substance: APIXABAN
     Dosage: STRENGTH: 5 MG
     Route: 048
     Dates: start: 202012
  7. ZOPICLONE [Concomitant]
     Active Substance: ZOPICLONE
     Route: 048
  8. IMETH [Suspect]
     Active Substance: METHOTREXATE SODIUM
     Indication: RHEUMATOID ARTHRITIS
     Dosage: STRENGTH: 10 MG
     Route: 048
     Dates: start: 20210108, end: 20210115

REACTIONS (10)
  - Anaemia [Fatal]
  - Medication error [Fatal]
  - Incorrect dose administered [Fatal]
  - Thrombocytopenia [Fatal]
  - General physical health deterioration [Fatal]
  - Product use issue [Unknown]
  - Septic shock [Fatal]
  - Mouth ulceration [Fatal]
  - Renal failure [Fatal]
  - Leukopenia [Fatal]

NARRATIVE: CASE EVENT DATE: 20210108
